FAERS Safety Report 17881837 (Version 2)
Quarter: 2020Q3

REPORT INFORMATION
  Report Type: Spontaneous
  Country: US (occurrence: US)
  Receive Date: 20200610
  Receipt Date: 20200917
  Transmission Date: 20201103
  Serious: Yes (Death, Other)
  Sender: FDA-Public Use
  Company Number: US-009507513-2006USA002303

PATIENT
  Sex: Female

DRUGS (1)
  1. TEMODAR [Suspect]
     Active Substance: TEMOZOLOMIDE
     Indication: BREAST CANCER
     Dosage: UNK
     Route: 042

REACTIONS (1)
  - Death [Fatal]

NARRATIVE: CASE EVENT DATE: 20170623
